FAERS Safety Report 11879659 (Version 2)
Quarter: 2016Q1

REPORT INFORMATION
  Report Type: Report from Study
  Country: US (occurrence: US)
  Receive Date: 20151230
  Receipt Date: 20160211
  Transmission Date: 20160526
  Serious: No
  Sender: FDA-Public Use
  Company Number: US-AEGERION PHARMACEUTICAL INC.-AEGR002070

PATIENT
  Age: 40 Year
  Sex: Male
  Weight: 75.28 kg

DRUGS (10)
  1. NIACIN. [Concomitant]
     Active Substance: NIACIN
     Indication: BLOOD CHOLESTEROL
     Dosage: 500 MG, QD
     Route: 048
     Dates: start: 2009
  2. ZETIA [Concomitant]
     Active Substance: EZETIMIBE
     Indication: BLOOD CHOLESTEROL
     Dosage: 10 MG, QD
     Route: 048
     Dates: start: 2009
  3. NITROGLYCERIN. [Concomitant]
     Active Substance: NITROGLYCERIN
     Indication: ANGINA PECTORIS
     Dosage: 0.4 MG, PRN
     Route: 060
     Dates: start: 2009
  4. JUXTAPID [Suspect]
     Active Substance: LOMITAPIDE MESYLATE
     Indication: TYPE IIA HYPERLIPIDAEMIA
     Dosage: 5 MG, QD
     Route: 048
     Dates: start: 20140307, end: 20140422
  5. JUXTAPID [Suspect]
     Active Substance: LOMITAPIDE MESYLATE
     Dosage: 10 MG, QD
     Route: 048
     Dates: start: 20140423, end: 20141130
  6. PRASUGREL [Concomitant]
     Active Substance: PRASUGREL
     Indication: CORONARY ARTERY DISEASE
     Dosage: 10 MG, QD
     Route: 048
     Dates: start: 2012
  7. ROSUVASTATIN [Concomitant]
     Active Substance: ROSUVASTATIN
     Indication: BLOOD CHOLESTEROL
     Dosage: 20 MG, QD
     Route: 048
     Dates: start: 2009
  8. JUXTAPID [Suspect]
     Active Substance: LOMITAPIDE MESYLATE
     Dosage: 20 MG, QD
     Route: 048
     Dates: start: 20141201
  9. LOSARTAN. [Concomitant]
     Active Substance: LOSARTAN
     Indication: HYPERTENSION
     Dosage: 50 MG, QD
     Route: 048
     Dates: start: 2011
  10. COLESEVELAM [Concomitant]
     Active Substance: COLESEVELAM
     Indication: BLOOD CHOLESTEROL
     Dosage: 3750 MG, QD
     Route: 048
     Dates: start: 2009

REACTIONS (2)
  - Blood cholesterol increased [Recovered/Resolved]
  - Cyst [Unknown]

NARRATIVE: CASE EVENT DATE: 201509
